FAERS Safety Report 25081423 (Version 2)
Quarter: 2025Q3

REPORT INFORMATION
  Report Type: Spontaneous
  Country: US (occurrence: US)
  Receive Date: 20250316
  Receipt Date: 20250916
  Transmission Date: 20251020
  Serious: No
  Sender: SANOFI AVENTIS
  Company Number: US-SA-2025SA075860

PATIENT
  Age: 73 Year
  Sex: Male
  Weight: 90.91 kg

DRUGS (14)
  1. DUPIXENT [Suspect]
     Active Substance: DUPILUMAB
     Indication: Dermatitis atopic
     Dosage: 300 MG, Q4W
     Route: 058
  2. DUPIXENT [Suspect]
     Active Substance: DUPILUMAB
     Dosage: 300 MG, Q6W
     Route: 058
  3. REVLIMID [Concomitant]
     Active Substance: LENALIDOMIDE
  4. DEXAMETHASONE SODIUM PHOSPHATE [Concomitant]
     Active Substance: DEXAMETHASONE SODIUM PHOSPHATE
  5. KYPROLIS [Concomitant]
     Active Substance: CARFILZOMIB
  6. XARELTO [Concomitant]
     Active Substance: RIVAROXABAN
  7. ROSUVASTATIN CALCIUM [Concomitant]
     Active Substance: ROSUVASTATIN CALCIUM
  8. MONTELUKAST SODIUM [Concomitant]
     Active Substance: MONTELUKAST SODIUM
  9. SULFAMETHOXAZOLE AND TRIMETHOPRIM [Concomitant]
     Active Substance: SULFAMETHOXAZOLE\TRIMETHOPRIM
  10. GABAPENTIN [Concomitant]
     Active Substance: GABAPENTIN
  11. OMEPRAZOLE [Concomitant]
     Active Substance: OMEPRAZOLE
  12. VALSARTAN [Concomitant]
     Active Substance: VALSARTAN
  13. ACYCLOVIR [Concomitant]
     Active Substance: ACYCLOVIR
  14. METHYLPREDNISOLONE [Concomitant]
     Active Substance: METHYLPREDNISOLONE

REACTIONS (3)
  - Influenza [Unknown]
  - Upper respiratory tract infection [Not Recovered/Not Resolved]
  - Inappropriate schedule of product administration [Unknown]

NARRATIVE: CASE EVENT DATE: 20250127
